FAERS Safety Report 15160470 (Version 1)
Quarter: 2018Q3

REPORT INFORMATION
  Report Type: Spontaneous
  Country: FR (occurrence: FR)
  Receive Date: 20180718
  Receipt Date: 20180718
  Transmission Date: 20181010
  Serious: Yes (Death, Hospitalization, Other)
  Sender: FDA-Public Use
  Company Number: FR-PFIZER INC-2018285054

PATIENT
  Age: 65 Year
  Sex: Female
  Weight: 48 kg

DRUGS (5)
  1. ZAVEDOS [Suspect]
     Active Substance: IDARUBICIN
     Indication: ACUTE MYELOID LEUKAEMIA RECURRENT
     Dosage: 1 DF, CYCLIC
     Dates: start: 20171116, end: 20171116
  2. FLUDARABINE TEVA [Suspect]
     Active Substance: FLUDARABINE PHOSPHATE
     Indication: ACUTE MYELOID LEUKAEMIA RECURRENT
     Dosage: 40 MG/M2, ONCE DAILY
     Route: 042
     Dates: start: 20180516, end: 20180520
  3. MYLOTARG [Suspect]
     Active Substance: GEMTUZUMAB OZOGAMICIN
     Indication: ACUTE MYELOID LEUKAEMIA RECURRENT
     Dosage: 1 DF, CYCLIC
     Dates: start: 20180505, end: 20180505
  4. ENDOXAN [Suspect]
     Active Substance: CYCLOPHOSPHAMIDE
     Indication: ACUTE MYELOID LEUKAEMIA RECURRENT
     Dosage: 50 MG/KG, SINGLE
     Route: 042
     Dates: start: 20180516, end: 20180516
  5. CYTARABINE KABI [Suspect]
     Active Substance: CYTARABINE
     Indication: ACUTE MYELOID LEUKAEMIA RECURRENT
     Dosage: 1 DF, ONCE DAILY
     Dates: start: 20180102, end: 20180312

REACTIONS (3)
  - Bone marrow failure [Fatal]
  - Cardiac failure [Fatal]
  - Multiple organ dysfunction syndrome [Fatal]

NARRATIVE: CASE EVENT DATE: 20180511
